FAERS Safety Report 4645248-6 (Version None)
Quarter: 2005Q1

REPORT INFORMATION
  Report Type: 
  Country: None (occurrence: None)
  Receive Date: 20050331
  Receipt Date: 20041201
  Transmission Date: 20050727
  Serious: No
  Sender: FDA-Public Use
  Company Number: 04P-163-0281869-00

PATIENT
  Age: 52 Year
  Sex: Female
  Weight: 38.5557 kg

DRUGS (4)
  1. HUMIRA [Suspect]
     Indication: RHEUMATOID ARTHRITIS
     Dosage: 40 MG, 1 IN 2 WK, SUBCUTANEOUS
     Route: 058
     Dates: start: 20040801
  2. FOLIC ACID [Concomitant]
  3. ALENDRONATE SODIUM [Concomitant]
  4. CALCIUM W/MAGNESIUM [Concomitant]

REACTIONS (1)
  - BLOOD URINE PRESENT [None]
